FAERS Safety Report 10019655 (Version 1)
Quarter: 2014Q1

REPORT INFORMATION
  Report Type: Spontaneous
  Country: GB (occurrence: GB)
  Receive Date: 20140318
  Receipt Date: 20140318
  Transmission Date: 20141002
  Serious: Yes (Hospitalization, Other)
  Sender: FDA-Public Use
  Company Number: GB-BAXTER-2014BAX013572

PATIENT
  Age: 59 Year
  Sex: Female

DRUGS (3)
  1. CYCLOPHOSPHAMIDE INJECTION 1G [Suspect]
     Indication: PLASMA CELL MYELOMA
     Dosage: 20 DAYS PRIOR TO ADMISSION COMPLETED THE FIRST CYCLE
     Route: 065
  2. THALIDOMIDE [Suspect]
     Indication: PLASMA CELL MYELOMA
     Dosage: 20 DAYS PRIOR TO ADMISSION COMPLETED THE FIRST CYCLE
     Route: 065
  3. DEXAMETHASONE [Suspect]
     Indication: PLASMA CELL MYELOMA
     Dosage: 20 DAYS PRIOR TO ADMISSION COMPLETED THE FIRST CYCLE
     Route: 065

REACTIONS (2)
  - Small intestinal obstruction [Recovered/Resolved]
  - Strongyloidiasis [Recovered/Resolved]
